FAERS Safety Report 10757118 (Version 2)
Quarter: 2015Q2

REPORT INFORMATION
  Report Type: Spontaneous
  Country: US (occurrence: US)
  Receive Date: 20150203
  Receipt Date: 20150609
  Transmission Date: 20150821
  Serious: Yes (Hospitalization, Other)
  Sender: FDA-Public Use
  Company Number: US-PFIZER INC-2015038609

PATIENT
  Age: 59 Year
  Sex: Female

DRUGS (12)
  1. LYRICA [Suspect]
     Active Substance: PREGABALIN
     Indication: DIABETIC NEUROPATHY
     Dosage: 100 MG, 3X/DAY
     Dates: start: 2004
  2. METFORMIN HCL [Concomitant]
     Active Substance: METFORMIN HYDROCHLORIDE
     Dosage: 1000 MG, 2X/DAY
     Route: 048
     Dates: start: 20120101
  3. ZANTAC [Concomitant]
     Active Substance: RANITIDINE HYDROCHLORIDE
     Dosage: 150 MG, DAILY
     Route: 048
     Dates: start: 20140918
  4. PRAVASTATIN SODIUM. [Concomitant]
     Active Substance: PRAVASTATIN SODIUM
     Dosage: 20 MG, 1X/DAY (BEDTIME)
     Route: 048
     Dates: start: 20130101
  5. VITAMIN B12 [Concomitant]
     Active Substance: CYANOCOBALAMIN
     Dosage: 5000 ?G, DAILY
     Route: 060
     Dates: start: 20150513
  6. TUMS [Concomitant]
     Active Substance: CALCIUM CARBONATE
     Dosage: 200 MG CALCIUM (500 MG), DAILY
     Route: 048
     Dates: start: 20140918
  7. CALCIUM + VIT D [Concomitant]
     Active Substance: CALCIUM\VITAMIN D
     Dosage: 500 MG CALCIUM, 500 UNIT, DAILY
     Route: 048
     Dates: start: 20150513
  8. FERROUS SULFATE [Concomitant]
     Active Substance: FERROUS SULFATE\FERROUS SULFATE, DRIED
     Dosage: 325 MG (65 MG IRON), DAILY
     Route: 048
     Dates: start: 20140930
  9. HALCION [Concomitant]
     Active Substance: TRIAZOLAM
     Dosage: 0.25 MG, DAILY
     Route: 048
     Dates: start: 20140823
  10. VITAMIN D3 [Concomitant]
     Active Substance: CHOLECALCIFEROL
     Dosage: 5000 UNIT, DAILY
     Route: 048
     Dates: start: 20140101
  11. PROZAC [Concomitant]
     Active Substance: FLUOXETINE HYDROCHLORIDE
     Dosage: 20 MG, DAILY
     Route: 048
     Dates: start: 20141001
  12. VOLTAREN [Concomitant]
     Active Substance: DICLOFENAC SODIUM
     Dosage: UNK, AS NEEDED
     Route: 061
     Dates: start: 20140905

REACTIONS (6)
  - Road traffic accident [Not Recovered/Not Resolved]
  - Open fracture [Unknown]
  - Amnesia [Unknown]
  - Memory impairment [Recovered/Resolved]
  - Back injury [Unknown]
  - Gait disturbance [Not Recovered/Not Resolved]

NARRATIVE: CASE EVENT DATE: 201405
